FAERS Safety Report 16940735 (Version 1)
Quarter: 2019Q4

REPORT INFORMATION
  Report Type: Spontaneous
  Country: KR (occurrence: KR)
  Receive Date: 20191021
  Receipt Date: 20191021
  Transmission Date: 20200122
  Serious: Yes (Other)
  Sender: FDA-Public Use
  Company Number: KR-HQ SPECIALTY-KR-2019INT000272

PATIENT

DRUGS (2)
  1. PEMBROLIZUMAB. [Suspect]
     Active Substance: PEMBROLIZUMAB
     Indication: SMALL CELL LUNG CANCER EXTENSIVE STAGE
     Dosage: 200 MG, DAY 1 OF EACH 3-WEEK CYCLE (Q3W), UP TO 5 CYCLES
     Route: 065
  2. PACLITAXEL. [Suspect]
     Active Substance: PACLITAXEL
     Indication: SMALL CELL LUNG CANCER EXTENSIVE STAGE
     Dosage: 175 MG/M2, OVER 3 H ON DAY 1 OF EACH 3-WEEK CYCLE (Q3W), MAXIMUM 6 CYCLES
     Route: 042

REACTIONS (1)
  - Type 1 diabetes mellitus [Unknown]
